FAERS Safety Report 16653382 (Version 2)
Quarter: 2019Q3

REPORT INFORMATION
  Report Type: Spontaneous
  Country: AU (occurrence: AU)
  Receive Date: 20190731
  Receipt Date: 20190909
  Transmission Date: 20191004
  Serious: Yes (Hospitalization)
  Sender: FDA-Public Use
  Company Number: AU-ASTRAZENECA-2019SF08436

PATIENT
  Sex: Male

DRUGS (1)
  1. BRIMICA GENUAIR [Suspect]
     Active Substance: ACLIDINIUM BROMIDE\FORMOTEROL FUMARATE
     Indication: CHRONIC OBSTRUCTIVE PULMONARY DISEASE
     Dosage: 1 PUFF TWICE DAILY
     Route: 055
     Dates: start: 201812

REACTIONS (1)
  - Infection [Unknown]
